FAERS Safety Report 14859740 (Version 1)
Quarter: 2018Q2

REPORT INFORMATION
  Report Type: Spontaneous
  Country: US (occurrence: US)
  Receive Date: 20180508
  Receipt Date: 20180508
  Transmission Date: 20180711
  Serious: No
  Sender: FDA-Public Use
  Company Number: US-PFIZER INC-2018188111

PATIENT
  Sex: Female
  Weight: 89.34 kg

DRUGS (2)
  1. LYRICA [Suspect]
     Active Substance: PREGABALIN
     Indication: NEURALGIA
     Dosage: 200 MG, 3X/DAY
  2. LYRICA [Suspect]
     Active Substance: PREGABALIN
     Dosage: 150 MG, 3X/DAY

REACTIONS (5)
  - Peripheral swelling [Unknown]
  - Burning sensation [Unknown]
  - Limb discomfort [Unknown]
  - Drug ineffective [Unknown]
  - Dyspnoea [Unknown]
